FAERS Safety Report 25433887 (Version 1)
Quarter: 2025Q2

REPORT INFORMATION
  Report Type: Spontaneous
  Country: US (occurrence: US)
  Receive Date: 20250613
  Receipt Date: 20250613
  Transmission Date: 20250717
  Serious: No
  Sender: EVOLUS, INC.
  Company Number: US-Evolus, Inc.-2025EV000372

PATIENT

DRUGS (1)
  1. HYALURONIC ACID\LIDOCAINE HYDROCHLORIDE [Suspect]
     Active Substance: HYALURONIC ACID\LIDOCAINE HYDROCHLORIDE
     Indication: Device use issue

REACTIONS (3)
  - Lip dry [Unknown]
  - Chapped lips [Unknown]
  - Off label use [Unknown]
